FAERS Safety Report 7827267-1 (Version None)
Quarter: 2011Q4

REPORT INFORMATION
  Report Type: 
  Country: None (occurrence: None)
  Receive Date: 20111019
  Receipt Date: 20111019
  Transmission Date: 20120403
  Serious: No
  Sender: FDA-Public Use
  Company Number: None

PATIENT
  Sex: Female
  Weight: 62 kg

DRUGS (5)
  1. CYCLOPHOSPHAMIDE [Suspect]
     Dosage: 1170 MG
  2. DOXORUBICIN HCL [Suspect]
     Dosage: 156 MG
  3. VINCRISTINE [Suspect]
     Dosage: 2 MG
  4. RITUXIMAB (MOAB C2B8 ANTI CD20) [Suspect]
     Dosage: 585 MG
  5. PREDNISONE [Suspect]
     Dosage: 300 MG

REACTIONS (1)
  - NEUTROPENIA [None]
